FAERS Safety Report 22373080 (Version 1)
Quarter: 2023Q2

REPORT INFORMATION
  Report Type: Report from Study
  Country: CA (occurrence: CA)
  Receive Date: 20230526
  Receipt Date: 20230526
  Transmission Date: 20230721
  Serious: Yes (Death, Other)
  Sender: FDA-Public Use
  Company Number: CA-IPSEN Group, Research and Development-2023-12155

PATIENT
  Age: 66 Year
  Sex: Female

DRUGS (8)
  1. LANREOTIDE ACETATE [Suspect]
     Active Substance: LANREOTIDE ACETATE
     Indication: Neuroendocrine tumour
     Route: 058
     Dates: start: 20221115
  2. LANREOTIDE ACETATE [Suspect]
     Active Substance: LANREOTIDE ACETATE
     Indication: Carcinoid syndrome
  3. XERMELO [Suspect]
     Active Substance: TELOTRISTAT ETHYL
     Indication: Carcinoid syndrome
     Dosage: TID
     Dates: start: 20220825
  4. XERMELO [Suspect]
     Active Substance: TELOTRISTAT ETHYL
     Indication: Diarrhoea
  5. SANDOSTATIN LAR DEPOT [Concomitant]
     Active Substance: OCTREOTIDE ACETATE
     Dosage: 60MG Q 3 SEM
  6. REMERON [Concomitant]
     Active Substance: MIRTAZAPINE
     Dosage: 30MG 1 CO DIE
  7. CHOLESTYRAMINE [Concomitant]
     Active Substance: CHOLESTYRAMINE
     Dosage: 4G DIE
  8. ACETAMINOPHEN [Concomitant]
     Active Substance: ACETAMINOPHEN
     Dosage: PRN

REACTIONS (1)
  - Death [Fatal]

NARRATIVE: CASE EVENT DATE: 20230520
